FAERS Safety Report 10497619 (Version 1)
Quarter: 2014Q4

REPORT INFORMATION
  Report Type: Spontaneous
  Country: DE (occurrence: None)
  Receive Date: 20141002
  Receipt Date: 20141002
  Transmission Date: 20150528
  Serious: Yes (Hospitalization)
  Sender: FDA-Public Use
  Company Number: 20141888-000

PATIENT
  Age: 69 Year
  Sex: Female

DRUGS (1)
  1. METEX PEN (METHOTREXATE INJECTION) [Suspect]
     Active Substance: METHOTREXATE
     Indication: PSORIASIS
     Dosage: X 75 MG IN
     Dates: start: 20130802, end: 20140616

REACTIONS (1)
  - Gamma-glutamyltransferase increased [None]

NARRATIVE: CASE EVENT DATE: 20140601
